FAERS Safety Report 4814647-1 (Version None)
Quarter: 2005Q4

REPORT INFORMATION
  Report Type: 
  Country: None (occurrence: None)
  Receive Date: 20051028
  Receipt Date: 20041213
  Transmission Date: 20060501
  Serious: No
  Sender: FDA-Public Use
  Company Number: US-GLAXOSMITHKLINE-A0537086A

PATIENT
  Age: 49 Year
  Sex: Female

DRUGS (9)
  1. ADVAIR DISKUS 100/50 [Suspect]
     Indication: ASTHMA
     Dosage: 1PUFF TWICE PER DAY
     Route: 055
     Dates: start: 20010101
  2. PROVENTIL [Concomitant]
  3. ZYRTEC [Concomitant]
  4. NASACORT AQ [Concomitant]
  5. ALBUTEROL [Concomitant]
  6. PATANOL [Concomitant]
  7. ORTHO TRI-CYCLEN [Concomitant]
  8. SYNTHROID [Concomitant]
  9. ROBAXIN [Concomitant]

REACTIONS (3)
  - ASTHMA [None]
  - COUGH [None]
  - PHARMACEUTICAL PRODUCT COMPLAINT [None]
